FAERS Safety Report 7198015-6 (Version None)
Quarter: 2010Q4

REPORT INFORMATION
  Report Type: 
  Country: None (occurrence: None)
  Receive Date: 20101227
  Receipt Date: 20101130
  Transmission Date: 20110411
  Serious: Yes (Other)
  Sender: FDA-Public Use
  Company Number: US-BAYER-201030602NA

PATIENT
  Sex: Female

DRUGS (6)
  1. BETASERON [Suspect]
     Indication: MULTIPLE SCLEROSIS
     Route: 058
     Dates: start: 20100804
  2. BETASERON [Suspect]
     Dosage: 8 MIU, QOD
     Route: 058
  3. CLONAZEPAM [Concomitant]
     Dates: start: 20100811
  4. PROZAC [Concomitant]
     Indication: DEPRESSION
     Dates: start: 19800101, end: 20100615
  5. PROZAC [Concomitant]
     Dosage: UNK
     Dates: start: 20100809
  6. ZOLOFT [Concomitant]
     Dates: end: 20100809

REACTIONS (14)
  - AFFECT LABILITY [None]
  - AGGRESSION [None]
  - ANGER [None]
  - BLOOD PRESSURE INCREASED [None]
  - CONFUSIONAL STATE [None]
  - DIZZINESS [None]
  - FATIGUE [None]
  - HYPERSOMNIA [None]
  - HYPERTENSION [None]
  - INJECTION SITE MASS [None]
  - INJECTION SITE PAIN [None]
  - MEMORY IMPAIRMENT [None]
  - NAUSEA [None]
  - TEARFULNESS [None]
